FAERS Safety Report 4547909-6 (Version None)
Quarter: 2004Q4

REPORT INFORMATION
  Report Type: 
  Country: None (occurrence: None)
  Receive Date: 20041227
  Receipt Date: 20041020
  Transmission Date: 20050328
  Serious: No
  Sender: FDA-Public Use
  Company Number: 04P-163-0278024-00

PATIENT
  Age: 72 Year
  Sex: Female
  Weight: 68.0396 kg

DRUGS (9)
  1. HUMIRA [Suspect]
     Indication: RHEUMATOID ARTHRITIS
     Dosage: 40 MG, 1 IN 2 WK, SUBCUTANEOUS
     Route: 058
     Dates: start: 20040301
  2. HYDROXYCHLOROQUINE PHOSPHATE [Concomitant]
  3. SULFADIMIDINE [Concomitant]
  4. LOSARTAN POTASSIUM [Concomitant]
  5. BISACODYL [Concomitant]
  6. ATORVASTATIN [Concomitant]
  7. PLINDIL [Concomitant]
  8. ATENOLOL [Concomitant]
  9. MULTIVITAMIN [Concomitant]

REACTIONS (2)
  - CONDITION AGGRAVATED [None]
  - INJECTION SITE STINGING [None]
